APPROVED DRUG PRODUCT: CALAN
Active Ingredient: VERAPAMIL HYDROCHLORIDE
Strength: 2.5MG/ML
Dosage Form/Route: INJECTABLE;INJECTION
Application: N019038 | Product #001
Applicant: GD SEARLE LLC
Approved: Mar 30, 1984 | RLD: No | RS: No | Type: DISCN